FAERS Safety Report 12948509 (Version 1)
Quarter: 2016Q4

REPORT INFORMATION
  Report Type: Spontaneous
  Country: US (occurrence: US)
  Receive Date: 20161116
  Receipt Date: 20161116
  Transmission Date: 20170207
  Serious: No
  Sender: FDA-Public Use
  Company Number: US-BAUSCH-BL-2016-005169

PATIENT
  Age: 72 Year
  Sex: Male
  Weight: 82.63 kg

DRUGS (3)
  1. VIGAMOX [Concomitant]
     Active Substance: MOXIFLOXACIN HYDROCHLORIDE
     Indication: CATARACT OPERATION
     Route: 047
     Dates: start: 201602, end: 201602
  2. ILEVRO [Concomitant]
     Active Substance: NEPAFENAC
     Indication: CATARACT OPERATION
     Route: 047
     Dates: start: 201602, end: 201602
  3. LOTEMAX [Suspect]
     Active Substance: LOTEPREDNOL ETABONATE
     Indication: CATARACT OPERATION
     Dosage: ONE DROP IN HIS RIGHT EYE 3 TIMES A DAY FOR 7 DAYS, THEN ONE DROP IN HIS RIGHT EYE 2 TIMES A DAY FOR
     Route: 047
     Dates: start: 201602

REACTIONS (2)
  - Foreign body sensation in eyes [Recovered/Resolved]
  - Swelling [Recovered/Resolved]

NARRATIVE: CASE EVENT DATE: 201602
